FAERS Safety Report 21895998 (Version 1)
Quarter: 2023Q1

REPORT INFORMATION
  Report Type: Spontaneous
  Country: US (occurrence: US)
  Receive Date: 20230123
  Receipt Date: 20230123
  Transmission Date: 20230417
  Serious: No
  Sender: FDA-Public Use
  Company Number: US-PADAGIS-2023PAD00015

PATIENT

DRUGS (5)
  1. IMIQUIMOD [Suspect]
     Active Substance: IMIQUIMOD
     Indication: Skin papilloma
     Dosage: UNK
     Route: 061
  2. ACITRETIN [Suspect]
     Active Substance: ACITRETIN
     Indication: Skin papilloma
     Dosage: UNK
     Route: 065
  3. BLEOMYCIN [Suspect]
     Active Substance: BLEOMYCIN SULFATE
     Indication: Skin papilloma
     Dosage: UNK
     Route: 026
  4. CIDOFOVIR [Suspect]
     Active Substance: CIDOFOVIR
     Indication: Skin papilloma
     Dosage: UNK
     Route: 061
  5. FLUOROURACIL [Suspect]
     Active Substance: FLUOROURACIL
     Indication: Skin papilloma
     Dosage: UNK
     Route: 061

REACTIONS (1)
  - Drug ineffective for unapproved indication [Unknown]
